FAERS Safety Report 15836102 (Version 1)
Quarter: 2019Q1

REPORT INFORMATION
  Report Type: Spontaneous
  Country: JP (occurrence: JP)
  Receive Date: 20190116
  Receipt Date: 20190116
  Transmission Date: 20190417
  Serious: Yes (Other)
  Sender: FDA-Public Use
  Company Number: None

PATIENT
  Age: 25 Year
  Sex: Male
  Weight: 99.45 kg

DRUGS (3)
  1. ATOMOXETINE. [Suspect]
     Active Substance: ATOMOXETINE HYDROCHLORIDE
     Indication: ATTENTION DEFICIT/HYPERACTIVITY DISORDER
     Route: 048
     Dates: start: 20190114, end: 20190115
  2. OXYCODONE 5MG Q6 HOURS PRN [Concomitant]
     Dates: start: 20190108, end: 20190115
  3. FLUOXETINE 40MG DAILY [Concomitant]
     Dates: start: 20181214

REACTIONS (5)
  - Nausea [None]
  - Suicidal ideation [None]
  - Vomiting [None]
  - Flushing [None]
  - Somnolence [None]

NARRATIVE: CASE EVENT DATE: 20190115
